FAERS Safety Report 8935571 (Version 1)
Quarter: 2012Q4

REPORT INFORMATION
  Report Type: 
  Country: US (occurrence: US)
  Receive Date: 20121130
  Receipt Date: 20121130
  Transmission Date: 20130627
  Serious: Yes (Other)
  Sender: FDA-Public Use
  Company Number: PHEH2012US023324

PATIENT
  Sex: Female
  Weight: 82.86 kg

DRUGS (4)
  1. EXJADE [Suspect]
     Indication: SICKLE CELL ANAEMIA
     Dosage: 500 mg, TID
     Route: 048
     Dates: start: 20110107, end: 20110908
  2. DILAUDID [Concomitant]
     Dosage: 4 mg, PRN
     Route: 048
  3. FOLIC ACID [Concomitant]
     Dosage: 1 mg, QD
     Route: 048
  4. IBUPROFEN [Concomitant]
     Dosage: 800 mg, PRN
     Route: 048

REACTIONS (2)
  - Confusional state [Recovered/Resolved]
  - Dizziness [Recovered/Resolved]
